FAERS Safety Report 14542935 (Version 2)
Quarter: 2018Q1

REPORT INFORMATION
  Report Type: Report from Study
  Country: CA (occurrence: CA)
  Receive Date: 20180216
  Receipt Date: 20180302
  Transmission Date: 20180509
  Serious: Yes (Death)
  Sender: FDA-Public Use
  Company Number: CA-HLSUS-2018-CA-000236

PATIENT
  Age: 77 Year
  Sex: Female

DRUGS (4)
  1. SINEMET [Concomitant]
     Active Substance: CARBIDOPA\LEVODOPA
     Indication: PARKINSON^S DISEASE
     Dosage: 2 TABLETS FOUR TIMES A DAY
     Route: 048
     Dates: start: 200804, end: 201802
  2. AMOXICILLIN. [Concomitant]
     Active Substance: AMOXICILLIN
     Indication: RESPIRATORY TRACT INFECTION
     Dosage: 875 MG ONCE DAILY FOR 10 DAYS
     Route: 048
  3. CLOZARIL [Suspect]
     Active Substance: CLOZAPINE
     Indication: PARKINSON^S DISEASE
     Dosage: 75 MG DAILY BED TIME
     Route: 048
     Dates: start: 20140319, end: 20180206
  4. QUETIAPINE. [Concomitant]
     Active Substance: QUETIAPINE
     Indication: PSYCHOTIC DISORDER
     Dosage: 175 MG ONCE DAILY
     Route: 048
     Dates: start: 2013, end: 2018

REACTIONS (2)
  - Pneumonia aspiration [Unknown]
  - Death [Fatal]

NARRATIVE: CASE EVENT DATE: 20180212
